FAERS Safety Report 7503274-3 (Version None)
Quarter: 2011Q2

REPORT INFORMATION
  Report Type: 
  Country: None (occurrence: None)
  Receive Date: 20110524
  Receipt Date: 20110524
  Transmission Date: 20111010
  Serious: Yes (Death)
  Sender: FDA-Public Use
  Company Number: None

PATIENT
  Age: 35 Year
  Sex: Male

DRUGS (9)
  1. ORAL VANCOMYCIN [Concomitant]
  2. ZOFRAN [Concomitant]
  3. COMPAZINE [Concomitant]
  4. HALDOL [Concomitant]
  5. REVLIMID [Suspect]
     Indication: MULTIPLE MYELOMA
     Dosage: 25MG DAILY ORALLY
     Route: 048
     Dates: start: 20100801, end: 20101001
  6. NEXIUM [Concomitant]
  7. ATIVAN [Concomitant]
  8. MORPHINE [Concomitant]
  9. ACYCLOVIR [Concomitant]

REACTIONS (2)
  - CLOSTRIDIUM DIFFICILE COLITIS [None]
  - BONE MARROW TRANSPLANT [None]
